FAERS Safety Report 5726276-6 (Version None)
Quarter: 2008Q2

REPORT INFORMATION
  Report Type: 
  Country: None (occurrence: None)
  Receive Date: 20080502
  Receipt Date: 20080421
  Transmission Date: 20081010
  Serious: Yes (Hospitalization, Other)
  Sender: FDA-Public Use
  Company Number: GB-JNJFOC-20080405552

PATIENT
  Sex: Female
  Weight: 51 kg

DRUGS (7)
  1. REMICADE [Suspect]
     Indication: ANKYLOSING SPONDYLITIS
     Dosage: WITHDRAWN BEFORE THE EVENT
     Route: 042
  2. OTHER BIOLOGIC (UNSPECIFIED) [Concomitant]
  3. PARACETAMOL [Concomitant]
  4. TRAMADOL HCL [Concomitant]
  5. ARCOXIA [Concomitant]
  6. PALFIUM [Concomitant]
  7. PANTOPRAZOLE SODIUM [Concomitant]

REACTIONS (1)
  - BREAST CANCER [None]
